FAERS Safety Report 8910398 (Version 1)
Quarter: 2012Q4

REPORT INFORMATION
  Report Type: 
  Country: US (occurrence: US)
  Receive Date: 20121115
  Receipt Date: 20121115
  Transmission Date: 20130627
  Serious: No
  Sender: FDA-Public Use
  Company Number: US-009507513-1210USA013188

PATIENT
  Sex: Female

DRUGS (3)
  1. PEGINTRON [Suspect]
     Dosage: UNK
     Dates: start: 201208, end: 201210
  2. TELAPREVIR [Suspect]
  3. RIBASPHERE [Suspect]

REACTIONS (1)
  - Treatment failure [Unknown]
